FAERS Safety Report 5364080-1 (Version None)
Quarter: 2007Q2

REPORT INFORMATION
  Report Type: 
  Country: None (occurrence: None)
  Receive Date: 20070530
  Receipt Date: 20070109
  Transmission Date: 20071010
  Serious: No
  Sender: FDA-Public Use
  Company Number: 2007PV028089

PATIENT
  Age: 50 Year
  Sex: Male
  Weight: 95.2554 kg

DRUGS (4)
  1. BYETTA [Suspect]
     Indication: DIABETES MELLITUS NON-INSULIN-DEPENDENT
     Dosage: SEE IMAGE
     Route: 058
     Dates: start: 20050101, end: 20050101
  2. BYETTA [Suspect]
     Indication: DIABETES MELLITUS NON-INSULIN-DEPENDENT
     Dosage: SEE IMAGE
     Route: 058
     Dates: start: 20050101
  3. LYRICA [Suspect]
     Indication: CONGENITAL NEUROLOGICAL DISORDER
     Dosage: 225 MG; BID; PO
     Route: 048
     Dates: start: 20050101
  4. GLIPIZIDE [Concomitant]

REACTIONS (4)
  - BLOOD GLUCOSE DECREASED [None]
  - DECREASED APPETITE [None]
  - INJECTION SITE DISCOMFORT [None]
  - WEIGHT INCREASED [None]
